FAERS Safety Report 9639217 (Version 2)
Quarter: 2013Q4

REPORT INFORMATION
  Report Type: Spontaneous
  Country: AU (occurrence: AU)
  Receive Date: 20131022
  Receipt Date: 20131024
  Transmission Date: 20140711
  Serious: Yes (Death, Other)
  Sender: FDA-Public Use
  Company Number: AU-ROCHE-1290310

PATIENT
  Sex: Female

DRUGS (4)
  1. VALIUM [Suspect]
     Indication: PRODUCT USED FOR UNKNOWN INDICATION
     Route: 065
  2. AMITRIPTYLINE [Concomitant]
  3. TRAMADOL [Concomitant]
  4. MERSYNDOL FORTE [Concomitant]

REACTIONS (3)
  - Overdose [Fatal]
  - Depression [Unknown]
  - Migraine [Unknown]
